FAERS Safety Report 4449477-6 (Version None)
Quarter: 2004Q3

REPORT INFORMATION
  Report Type: 
  Country: None (occurrence: None)
  Receive Date: 20040913
  Receipt Date: 20040903
  Transmission Date: 20050211
  Serious: Yes (Other)
  Sender: FDA-Public Use
  Company Number: 2004-09-0173

PATIENT
  Age: 72 Year
  Sex: Male

DRUGS (1)
  1. TEMODAL [Suspect]
     Dosage: ORAL
     Route: 048
     Dates: start: 20040801

REACTIONS (3)
  - AGGRESSION [None]
  - CONFUSIONAL STATE [None]
  - NERVOUSNESS [None]
